FAERS Safety Report 10089229 (Version 1)
Quarter: 2014Q2

REPORT INFORMATION
  Report Type: Spontaneous
  Country: US (occurrence: None)
  Receive Date: 20140418
  Receipt Date: 20140418
  Transmission Date: 20141212
  Serious: No
  Sender: FDA-Public Use
  Company Number: None

PATIENT
  Age: 46 Year
  Sex: Female
  Weight: 54.43 kg

DRUGS (1)
  1. BOTOX [Suspect]
     Dates: start: 20140315

REACTIONS (7)
  - Vision blurred [None]
  - Diplopia [None]
  - Oropharyngeal pain [None]
  - Headache [None]
  - Muscle fatigue [None]
  - Neck pain [None]
  - Eye disorder [None]
